FAERS Safety Report 25359274 (Version 2)
Quarter: 2025Q2

REPORT INFORMATION
  Report Type: Spontaneous
  Country: US (occurrence: US)
  Receive Date: 20250526
  Receipt Date: 20250605
  Transmission Date: 20250717
  Serious: Yes (Death, Hospitalization, Other)
  Sender: TEVA
  Company Number: US-TEVA-VS-3333332

PATIENT
  Age: 31 Year
  Sex: Female

DRUGS (6)
  1. VALGANCICLOVIR [Suspect]
     Active Substance: VALGANCICLOVIR
     Indication: Cytomegalovirus viraemia
     Route: 065
  2. DOXORUBICIN [Suspect]
     Active Substance: DOXORUBICIN
     Indication: Kaposi^s sarcoma
     Route: 065
  3. TACROLIMUS [Suspect]
     Active Substance: TACROLIMUS
     Indication: Immunosuppressant drug therapy
     Route: 065
  4. RITUXIMAB [Suspect]
     Active Substance: RITUXIMAB
     Indication: Kaposi sarcoma inflammatory cytokine syndrome
     Route: 065
  5. DEVICE [Suspect]
     Active Substance: DEVICE
  6. DEVICE [Suspect]
     Active Substance: DEVICE

REACTIONS (10)
  - Drug ineffective [Fatal]
  - Febrile neutropenia [Unknown]
  - Hypotension [Recovering/Resolving]
  - Neutropenia [Unknown]
  - Pulmonary mass [Unknown]
  - Colitis [Unknown]
  - Toxicity to various agents [Unknown]
  - Pancytopenia [Unknown]
  - Tremor [Unknown]
  - Acute kidney injury [Recovering/Resolving]
